FAERS Safety Report 16078352 (Version 1)
Quarter: 2019Q2

REPORT INFORMATION
  Report Type: Spontaneous
  Country: US (occurrence: US)
  Receive Date: 20190315
  Receipt Date: 20190315
  Transmission Date: 20190711
  Serious: Yes (Hospitalization)
  Sender: FDA-Public Use
  Company Number: None

PATIENT
  Age: 39 Year
  Sex: Female
  Weight: 63.5 kg

DRUGS (1)
  1. PARAGARD T 380A [Suspect]
     Active Substance: COPPER
     Dates: start: 20170228, end: 20190208

REACTIONS (4)
  - Device breakage [None]
  - Complication of device removal [None]
  - Embedded device [None]
  - Menorrhagia [None]

NARRATIVE: CASE EVENT DATE: 20190315
